FAERS Safety Report 9652234 (Version 1)
Quarter: 2013Q4

REPORT INFORMATION
  Report Type: Spontaneous
  Country: US (occurrence: US)
  Receive Date: 20131029
  Receipt Date: 20131029
  Transmission Date: 20140711
  Serious: No
  Sender: FDA-Public Use
  Company Number: US-BIOGENIDEC-2013BI075119

PATIENT
  Age: 35 Year
  Sex: Female

DRUGS (4)
  1. TECFIDERA [Suspect]
     Indication: MULTIPLE SCLEROSIS
     Route: 048
     Dates: start: 20130520
  2. DEXILANT [Concomitant]
  3. LISINOPRIL [Concomitant]
  4. EMLA [Concomitant]

REACTIONS (3)
  - Nasal congestion [Unknown]
  - Upper respiratory tract congestion [Unknown]
  - Flushing [Unknown]
